FAERS Safety Report 5753520-1 (Version None)
Quarter: 2008Q2

REPORT INFORMATION
  Report Type: 
  Country: None (occurrence: None)
  Receive Date: 20080530
  Receipt Date: 20080521
  Transmission Date: 20081010
  Serious: Yes (Hospitalization)
  Sender: FDA-Public Use
  Company Number: PHHO2008PH06783

PATIENT
  Sex: Male

DRUGS (15)
  1. ZOMETA [Suspect]
     Dosage: UNK
     Dates: start: 20070526
  2. SUNITINIB MALATE [Concomitant]
  3. PIOGLITAZONE HCL [Concomitant]
  4. SOLOSA [Concomitant]
  5. NORVASC [Concomitant]
  6. BONIVA [Concomitant]
  7. CALTRATE PLUS [Concomitant]
  8. MORIAMIN [Concomitant]
  9. VITAMIN AND MINERAL PRENATAL SUPPLEMENT W/ FOLIC ACID CAP [Concomitant]
  10. ANSIMAR [Concomitant]
  11. FLUIMICIL [Concomitant]
  12. LOPID [Concomitant]
  13. CELEBREX [Concomitant]
  14. VALSARTAN [Concomitant]
  15. MYCOSTATIN [Concomitant]

REACTIONS (5)
  - ASTHENIA [None]
  - DIZZINESS [None]
  - HYPOGLYCAEMIA [None]
  - MOUTH ULCERATION [None]
  - ORAL INTAKE REDUCED [None]
